FAERS Safety Report 10146856 (Version 1)
Quarter: 2014Q2

REPORT INFORMATION
  Report Type: Spontaneous
  Country: US (occurrence: US)
  Receive Date: 20140501
  Receipt Date: 20140501
  Transmission Date: 20141212
  Serious: No
  Sender: FDA-Public Use
  Company Number: US-BAUSCH-BL-2014-000611

PATIENT
  Age: 83 Year
  Sex: Male

DRUGS (1)
  1. ALREX (LOTEPREDNOL ETABONATE OPHTHALMIC SUSPENSION 0.2%) [Suspect]
     Indication: LACRIMATION INCREASED
     Route: 047
     Dates: start: 20140112

REACTIONS (1)
  - Drug ineffective [Not Recovered/Not Resolved]
